FAERS Safety Report 22079811 (Version 1)
Quarter: 2023Q1

REPORT INFORMATION
  Report Type: Spontaneous
  Country: CN (occurrence: CN)
  Receive Date: 20230309
  Receipt Date: 20230309
  Transmission Date: 20230418
  Serious: Yes (Other)
  Sender: FDA-Public Use
  Company Number: CN-BAYER-2023A030237

PATIENT
  Age: 50 Year
  Sex: Female

DRUGS (10)
  1. NEXAVAR [Suspect]
     Active Substance: SORAFENIB
     Indication: Hepatic cancer
     Dosage: UNK
     Dates: start: 2020
  2. NEXAVAR [Suspect]
     Active Substance: SORAFENIB
     Indication: Tumour thrombosis
  3. CAMRELIZUMAB [Concomitant]
     Active Substance: CAMRELIZUMAB
     Indication: Hepatic cancer
     Dosage: UNK
     Dates: start: 2020
  4. CAMRELIZUMAB [Concomitant]
     Active Substance: CAMRELIZUMAB
     Indication: Tumour thrombosis
  5. OXALIPLATIN [Concomitant]
     Active Substance: OXALIPLATIN
     Indication: Hepatic cancer
     Dosage: UNK
     Route: 013
     Dates: start: 2020
  6. OXALIPLATIN [Concomitant]
     Active Substance: OXALIPLATIN
     Indication: Tumour thrombosis
  7. LEUCOVORIN CALCIUM [Concomitant]
     Active Substance: LEUCOVORIN CALCIUM
     Indication: Hepatic cancer
     Dosage: UNK
     Route: 013
     Dates: start: 2020
  8. LEUCOVORIN CALCIUM [Concomitant]
     Active Substance: LEUCOVORIN CALCIUM
     Indication: Tumour thrombosis
  9. FLUOROURACIL [Concomitant]
     Active Substance: FLUOROURACIL
     Indication: Hepatic cancer
     Dosage: UNK
     Route: 013
     Dates: start: 2020
  10. FLUOROURACIL [Concomitant]
     Active Substance: FLUOROURACIL
     Indication: Tumour thrombosis

REACTIONS (1)
  - Hepatic cancer [Recovering/Resolving]

NARRATIVE: CASE EVENT DATE: 20200101
